FAERS Safety Report 10154174 (Version 1)
Quarter: 2014Q2

REPORT INFORMATION
  Report Type: Spontaneous
  Country: TN (occurrence: None)
  Receive Date: 20140502
  Receipt Date: 20140502
  Transmission Date: 20141212
  Serious: Yes (Other)
  Sender: FDA-Public Use
  Company Number: INT_00373_2014

PATIENT
  Age: 42 Year
  Sex: Female

DRUGS (3)
  1. CISPLATIN (CISPLATIN) [Suspect]
     Indication: B-CELL LYMPHOMA
     Dosage: DF
  2. CYTOSINE ARABINOSIDE [Concomitant]
  3. DEXAMETHASONE [Concomitant]

REACTIONS (6)
  - Bone pain [None]
  - Muscle spasms [None]
  - Osteolysis [None]
  - Blood calcium decreased [None]
  - Osteomalacia [None]
  - Hypomagnesaemia [None]
